FAERS Safety Report 6300342-9 (Version None)
Quarter: 2009Q3

REPORT INFORMATION
  Report Type: 
  Country: None (occurrence: None)
  Receive Date: 20090805
  Receipt Date: 20090723
  Transmission Date: 20100115
  Serious: Yes (Other)
  Sender: FDA-Public Use
  Company Number: 238254K09USA

PATIENT
  Age: 53 Year
  Sex: Female

DRUGS (11)
  1. REBIF [Suspect]
     Indication: MULTIPLE SCLEROSIS
     Dosage: 44 MCG, 3 IN 1 WEEKS, SUBCUTANEOUS
     Route: 058
     Dates: start: 20070206
  2. LEVOXYL [Concomitant]
  3. LIPITOR [Concomitant]
  4. FLUOXETINE (FLUOXETINE /00724401/) [Concomitant]
  5. PRUVATE (ALL OTHER THERAPEUTIC PRODUCTS) [Concomitant]
  6. AMITIZA (ALL OTHER THERAPEUTIC PRODUCTS) [Concomitant]
  7. ALEVE [Concomitant]
  8. MELATONIN (MELATONIN) [Concomitant]
  9. L-THEANINE (ALL OTHER THERAPEUTIC PRODUCTS) [Concomitant]
  10. SUPPLEMENTATIONS (MULTIVITAMIN AND MINERAL SUPPLEMENT) [Concomitant]
  11. ASPIRIN [Concomitant]

REACTIONS (3)
  - CATARACT [None]
  - EYELID PTOSIS [None]
  - FATIGUE [None]
